APPROVED DRUG PRODUCT: SUMATRIPTAN SUCCINATE
Active Ingredient: SUMATRIPTAN SUCCINATE
Strength: EQ 6MG BASE/0.5ML (EQ 12MG BASE/ML)
Dosage Form/Route: INJECTABLE;SUBCUTANEOUS
Application: A090358 | Product #001 | TE Code: AB
Applicant: SUN PHARMACEUTICAL INDUSTRIES LTD
Approved: Jun 21, 2011 | RLD: No | RS: No | Type: RX